FAERS Safety Report 17057942 (Version 1)
Quarter: 2019Q4

REPORT INFORMATION
  Report Type: Spontaneous
  Country: CN (occurrence: CN)
  Receive Date: 20191121
  Receipt Date: 20191121
  Transmission Date: 20200122
  Serious: Yes (Hospitalization)
  Sender: FDA-Public Use
  Company Number: CN-PFIZER INC-2019496340

PATIENT
  Age: 72 Year
  Sex: Male
  Weight: 60 kg

DRUGS (2)
  1. LYRICA [Suspect]
     Active Substance: PREGABALIN
     Indication: POST HERPETIC NEURALGIA
     Dosage: 75 MG, 2X/DAY
     Route: 048
     Dates: start: 20191007, end: 20191016
  2. CELEBREX [Suspect]
     Active Substance: CELECOXIB
     Indication: POST HERPETIC NEURALGIA
     Dosage: 200 MG, 1X/DAY
     Route: 048
     Dates: start: 20191007, end: 20191016

REACTIONS (4)
  - Eyelid oedema [Recovering/Resolving]
  - Oedema peripheral [Recovering/Resolving]
  - Blood albumin decreased [Recovering/Resolving]
  - Face oedema [Recovering/Resolving]

NARRATIVE: CASE EVENT DATE: 20191016
